FAERS Safety Report 6737961-1 (Version None)
Quarter: 2010Q2

REPORT INFORMATION
  Report Type: 
  Country: None (occurrence: None)
  Receive Date: 20100524
  Receipt Date: 20100423
  Transmission Date: 20101027
  Serious: No
  Sender: FDA-Public Use
  Company Number: A0854671A

PATIENT
  Age: 87 Year
  Sex: Female
  Weight: 66.4 kg

DRUGS (1)
  1. ARZERRA [Suspect]
     Indication: DRUG USE FOR UNKNOWN INDICATION
     Dosage: 2000MG UNKNOWN
     Route: 042
     Dates: start: 20100326

REACTIONS (1)
  - DIPLOPIA [None]
